FAERS Safety Report 21957317 (Version 2)
Quarter: 2024Q4

REPORT INFORMATION
  Report Type: Spontaneous
  Country: GB (occurrence: GB)
  Receive Date: 20230206
  Receipt Date: 20241115
  Transmission Date: 20250114
  Serious: Yes (Other)
  Sender: ACCORD
  Company Number: None

PATIENT
  Age: 40 Year
  Sex: Male

DRUGS (5)
  1. ESOMEPRAZOLE [Suspect]
     Active Substance: ESOMEPRAZOLE
     Indication: Product used for unknown indication
     Dosage: 40 MG ADMINISTERED VIA THE VASCULAR ACCESS SITE ON THE 24-JAN2023
     Dates: start: 20230124
  2. ONDANSETRON [Suspect]
     Active Substance: ONDANSETRON
     Indication: Product used for unknown indication
     Dosage: 40 MG ADMINISTERED VIA THE VASCULAR ACCESS SITE ON THE 24-JAN2023
     Dates: start: 20230124
  3. FAMOTIDINE [Concomitant]
     Active Substance: FAMOTIDINE
  4. LANSOPRAZOLE [Concomitant]
     Active Substance: LANSOPRAZOLE
  5. NAPROXEN [Concomitant]
     Active Substance: NAPROXEN

REACTIONS (2)
  - Extravasation [Recovered/Resolved]
  - Administration site inflammation [Unknown]

NARRATIVE: CASE EVENT DATE: 20230124
